FAERS Safety Report 5262173-0 (Version None)
Quarter: 2007Q1

REPORT INFORMATION
  Report Type: 
  Country: None (occurrence: None)
  Receive Date: 20070311
  Receipt Date: 20070228
  Transmission Date: 20070707
  Serious: No
  Sender: FDA-Public Use
  Company Number: 2006UW08034

PATIENT
  Sex: Female
  Weight: 90.9 kg

DRUGS (8)
  1. SEROQUEL [Suspect]
     Indication: SLEEP DISORDER
     Route: 048
     Dates: start: 19980101, end: 20040101
  2. SEROQUEL [Suspect]
     Indication: SCHIZOAFFECTIVE DISORDER
     Route: 048
     Dates: start: 19980101, end: 20040101
  3. SEROQUEL [Suspect]
     Indication: BIPOLAR I DISORDER
     Route: 048
     Dates: start: 19980101, end: 20040101
  4. ABILIFY [Concomitant]
  5. CLOZARIL [Concomitant]
  6. NAVANE [Concomitant]
  7. ZYPREXA [Concomitant]
  8. PSYCHIATRIC MEDICATION [Concomitant]

REACTIONS (1)
  - DIABETES MELLITUS [None]
